FAERS Safety Report 15413700 (Version 9)
Quarter: 2021Q2

REPORT INFORMATION
  Report Type: Report from Study
  Country: CZ (occurrence: CZ)
  Receive Date: 20180921
  Receipt Date: 20210427
  Transmission Date: 20210716
  Serious: Yes (Hospitalization)
  Sender: FDA-Public Use
  Company Number: CZ-EISAI MEDICAL RESEARCH-EC-2018-045186

PATIENT
  Age: 73 Year
  Sex: Male
  Weight: 77.4 kg

DRUGS (23)
  1. LENVATINIB [Suspect]
     Active Substance: LENVATINIB
     Route: 048
     Dates: start: 20180830, end: 20180914
  2. LENVATINIB [Suspect]
     Active Substance: LENVATINIB
     Route: 048
     Dates: start: 20181220, end: 20190401
  3. EVEROLIMUS. [Suspect]
     Active Substance: EVEROLIMUS
     Route: 048
     Dates: start: 20180830, end: 20180914
  4. EVEROLIMUS. [Suspect]
     Active Substance: EVEROLIMUS
     Route: 048
     Dates: start: 20181116, end: 20181209
  5. TRAJENTA [Concomitant]
     Active Substance: LINAGLIPTIN
  6. LENVATINIB [Suspect]
     Active Substance: LENVATINIB
     Route: 048
     Dates: start: 20190404, end: 20191030
  7. EVEROLIMUS. [Suspect]
     Active Substance: EVEROLIMUS
     Route: 048
     Dates: end: 20201202
  8. NEBIVOLOL. [Concomitant]
     Active Substance: NEBIVOLOL
  9. ANOPYRIN [Concomitant]
     Active Substance: ASPIRIN
  10. LENVATINIB [Suspect]
     Active Substance: LENVATINIB
     Indication: CLEAR CELL RENAL CELL CARCINOMA
     Route: 048
     Dates: start: 20180814, end: 20180820
  11. LENVATINIB [Suspect]
     Active Substance: LENVATINIB
     Route: 048
     Dates: start: 20180920, end: 20181111
  12. LENVATINIB [Suspect]
     Active Substance: LENVATINIB
     Route: 048
     Dates: start: 20181116, end: 20181209
  13. KYLOTAN [Concomitant]
  14. RILMENIDIN [Concomitant]
     Active Substance: RILMENIDINE
  15. FINPROS [Concomitant]
     Active Substance: FINASTERIDE
  16. FENTANYLUM [Concomitant]
  17. EVEROLIMUS. [Suspect]
     Active Substance: EVEROLIMUS
     Indication: CLEAR CELL RENAL CELL CARCINOMA
     Route: 048
     Dates: start: 20180814, end: 20180820
  18. EVEROLIMUS. [Suspect]
     Active Substance: EVEROLIMUS
     Route: 048
     Dates: start: 20180920, end: 20181111
  19. EVEROLIMUS. [Suspect]
     Active Substance: EVEROLIMUS
     Route: 048
     Dates: start: 20181220, end: 20190401
  20. EVEROLIMUS. [Suspect]
     Active Substance: EVEROLIMUS
     Route: 048
     Dates: start: 20190404, end: 20191030
  21. RHEFLUIN [Concomitant]
  22. PURINOL [Concomitant]
  23. THEOPHYLLINUM [Concomitant]

REACTIONS (6)
  - Dehydration [Recovered/Resolved]
  - Fatigue [Recovered/Resolved]
  - Decreased appetite [Recovered/Resolved]
  - Pharyngitis [Recovered/Resolved]
  - Abdominal pain [Recovered/Resolved]
  - Pneumonitis [Recovered/Resolved]

NARRATIVE: CASE EVENT DATE: 20180913
